FAERS Safety Report 8913636 (Version 1)
Quarter: 2012Q4

REPORT INFORMATION
  Report Type: 
  Country: US (occurrence: US)
  Receive Date: 20121119
  Receipt Date: 20121119
  Transmission Date: 20130627
  Serious: No
  Sender: FDA-Public Use
  Company Number: US-PFIZER INC-2012285012

PATIENT
  Age: 57 Year
  Sex: Male
  Weight: 53.06 kg

DRUGS (7)
  1. CELEBREX [Suspect]
     Indication: RHEUMATOID ARTHRITIS
     Dosage: 200 mg, 2x/day
     Dates: end: 2012
  2. LYRICA [Suspect]
     Indication: DEPRESSION
     Dosage: 75 mg, 2x/day
  3. HYDROCODONE [Concomitant]
     Indication: PAIN
     Dosage: UNK , 2x/day
  4. PREDNISONE [Concomitant]
     Indication: PAIN
     Dosage: UNK
  5. TRAMADOL HYDROCHLORIDE [Concomitant]
     Indication: PAIN
     Dosage: 50 mg, 3x/day
  6. OXYCODONE [Concomitant]
     Indication: PAIN
     Dosage: 5 mg, UNK
  7. OXYCODONE [Concomitant]
     Dosage: 10 mg, UNK
     Dates: end: 2012

REACTIONS (3)
  - Pain in extremity [Not Recovered/Not Resolved]
  - Arthralgia [Not Recovered/Not Resolved]
  - Musculoskeletal pain [Not Recovered/Not Resolved]
